FAERS Safety Report 6392262-9 (Version None)
Quarter: 2009Q4

REPORT INFORMATION
  Report Type: 
  Country: None (occurrence: None)
  Receive Date: 20091005
  Receipt Date: 20090922
  Transmission Date: 20100525
  Serious: Yes (Hospitalization)
  Sender: FDA-Public Use
  Company Number: 2009AL006169

PATIENT
  Age: 22 Year
  Sex: Female

DRUGS (2)
  1. PHENYTOIN [Suspect]
     Indication: EPILEPSY
     Dosage: 200 MG;QD
  2. PHENOBARBITAL TAB [Suspect]
     Indication: EPILEPSY
     Dosage: 200 MG;QD

REACTIONS (2)
  - FIBROMATOSIS [None]
  - NODULE [None]
